FAERS Safety Report 6989394-0 (Version None)
Quarter: 2010Q3

REPORT INFORMATION
  Report Type: 
  Country: None (occurrence: None)
  Receive Date: 20100916
  Receipt Date: 20091104
  Transmission Date: 20110219
  Serious: Yes (Other)
  Sender: FDA-Public Use
  Company Number: ZA-PFIZER INC-2009293991

PATIENT
  Sex: Female

DRUGS (11)
  1. LYRICA [Suspect]
     Indication: NEURALGIA
     Dosage: 75 MG, 2X/DAY
     Route: 048
  2. ACTIVELLE [Concomitant]
     Indication: HORMONE REPLACEMENT THERAPY
     Dosage: UNK
     Route: 048
  3. CALCIUM [Concomitant]
     Dosage: UNK
     Route: 065
  4. BURINEX K [Concomitant]
     Dosage: UNK
     Route: 048
  5. ASPIRIN [Concomitant]
     Dosage: 81 MG, UNK
     Route: 048
  6. FOLIC ACID [Concomitant]
     Dosage: 5 MG, UNK
  7. LOVAZA [Concomitant]
     Dosage: UNK
     Route: 065
  8. PERINDOPRIL [Concomitant]
     Dosage: UNK
     Route: 048
  9. SERETIDE [Concomitant]
     Dosage: 50/250 UG, UNK
  10. SIMVASTATIN [Concomitant]
     Dosage: 20 MG, UNK
  11. XYZAL [Concomitant]
     Dosage: UNK
     Route: 048

REACTIONS (1)
  - CONVULSION [None]
